FAERS Safety Report 7575166-5 (Version None)
Quarter: 2011Q2

REPORT INFORMATION
  Report Type: 
  Country: None (occurrence: None)
  Receive Date: 20110627
  Receipt Date: 20110622
  Transmission Date: 20111010
  Serious: Yes (Other)
  Sender: FDA-Public Use
  Company Number: CA-PFIZER INC-2011135226

PATIENT
  Age: 60 Year
  Sex: Male

DRUGS (1)
  1. EFFEXOR [Suspect]
     Indication: ANXIETY
     Dosage: 75 MG/DAY
     Dates: start: 20050101, end: 20100101

REACTIONS (19)
  - DEPRESSION [None]
  - SLEEP DISORDER [None]
  - FEELING ABNORMAL [None]
  - DYSPHONIA [None]
  - MENTAL DISORDER [None]
  - DISTURBANCE IN ATTENTION [None]
  - FATIGUE [None]
  - PARAESTHESIA [None]
  - AGITATION [None]
  - ANGER [None]
  - INSOMNIA [None]
  - CONFUSIONAL STATE [None]
  - JUDGEMENT IMPAIRED [None]
  - IMPAIRED DRIVING ABILITY [None]
  - DYSARTHRIA [None]
  - LOSS OF LIBIDO [None]
  - DRUG WITHDRAWAL SYNDROME [None]
  - SPEECH DISORDER [None]
  - FEELING JITTERY [None]
